FAERS Safety Report 12939243 (Version 1)
Quarter: 2016Q4

REPORT INFORMATION
  Report Type: Spontaneous
  Country: US (occurrence: US)
  Receive Date: 20161114
  Receipt Date: 20161114
  Transmission Date: 20170207
  Serious: No
  Sender: FDA-Public Use
  Company Number: None

PATIENT
  Age: 23 Year
  Sex: Female
  Weight: 69.75 kg

DRUGS (6)
  1. BUPROPION HCL [Suspect]
     Active Substance: BUPROPION HYDROCHLORIDE
     Indication: DEPRESSION
     Dosage: ?          QUANTITY:1 TABLET(S);?
     Route: 048
     Dates: start: 20161103, end: 20161112
  2. MIRENA [Concomitant]
     Active Substance: LEVONORGESTREL
  3. BUPROPION HCL [Suspect]
     Active Substance: BUPROPION HYDROCHLORIDE
     Indication: ATTENTION DEFICIT/HYPERACTIVITY DISORDER
     Dosage: ?          QUANTITY:1 TABLET(S);?
     Route: 048
     Dates: start: 20161103, end: 20161112
  4. IODINE. [Concomitant]
     Active Substance: IODINE
  5. VITAMIN B [Concomitant]
     Active Substance: VITAMIN B
  6. MELITONIN [Concomitant]

REACTIONS (7)
  - Lip swelling [None]
  - Peripheral swelling [None]
  - Pruritus [None]
  - Tenderness [None]
  - Pain [None]
  - Drug ineffective [None]
  - Urticaria [None]

NARRATIVE: CASE EVENT DATE: 20161111
